FAERS Safety Report 24719880 (Version 1)
Quarter: 2024Q4

REPORT INFORMATION
  Report Type: Spontaneous
  Country: DE (occurrence: DE)
  Receive Date: 20241211
  Receipt Date: 20241211
  Transmission Date: 20250115
  Serious: Yes (Death, Other)
  Sender: RANBAXY
  Company Number: DE-SUN PHARMACEUTICAL INDUSTRIES LTD-2024R1-483506

PATIENT
  Age: 70 Year
  Sex: Male

DRUGS (2)
  1. METHOTREXATE [Suspect]
     Active Substance: METHOTREXATE
     Indication: Lymphoma
     Dosage: UNK
     Route: 065
  2. BRENTUXIMAB VEDOTIN [Suspect]
     Active Substance: BRENTUXIMAB VEDOTIN
     Indication: Lymphoma
     Dosage: UNK
     Route: 065

REACTIONS (1)
  - Death [Fatal]
